FAERS Safety Report 21183733 (Version 1)
Quarter: 2022Q3

REPORT INFORMATION
  Report Type: Report from Study
  Country: US (occurrence: US)
  Receive Date: 20220808
  Receipt Date: 20220808
  Transmission Date: 20221027
  Serious: Yes (Other)
  Sender: FDA-Public Use
  Company Number: US-BoehringerIngelheim-2022-BI-108259

PATIENT
  Age: 68 Year
  Sex: Male

DRUGS (3)
  1. OFEV [Suspect]
     Active Substance: NINTEDANIB
     Indication: Idiopathic pulmonary fibrosis
     Route: 048
     Dates: start: 20211212
  2. OFEV [Suspect]
     Active Substance: NINTEDANIB
     Route: 048
     Dates: start: 20220110, end: 20220715
  3. OFEV [Suspect]
     Active Substance: NINTEDANIB

REACTIONS (16)
  - Rectal haemorrhage [Recovered/Resolved]
  - Diarrhoea [Recovered/Resolved]
  - Diarrhoea [Not Recovered/Not Resolved]
  - Diarrhoea [Recovered/Resolved]
  - Blood pressure increased [Not Recovered/Not Resolved]
  - Oxygen saturation increased [Not Recovered/Not Resolved]
  - Chromaturia [Recovering/Resolving]
  - Flatulence [Recovered/Resolved]
  - Defaecation urgency [Recovered/Resolved]
  - Diarrhoea [Recovered/Resolved]
  - Sleep disorder [Recovered/Resolved]
  - Thrombosis [Unknown]
  - Feeling abnormal [Unknown]
  - Flatulence [Unknown]
  - Sleep disorder [Recovered/Resolved]
  - Dyspnoea [Unknown]

NARRATIVE: CASE EVENT DATE: 20211201
